FAERS Safety Report 6829538-4 (Version None)
Quarter: 2010Q3

REPORT INFORMATION
  Report Type: 
  Country: None (occurrence: None)
  Receive Date: 20100709
  Receipt Date: 20070404
  Transmission Date: 20110219
  Serious: Yes (Other)
  Sender: FDA-Public Use
  Company Number: US-PFIZER INC-2007003164

PATIENT
  Age: 59 Year
  Sex: Female
  Weight: 68 kg

DRUGS (9)
  1. CHANTIX [Suspect]
     Indication: SMOKING CESSATION THERAPY
     Dates: start: 20070101, end: 20070201
  2. ZETIA [Suspect]
     Dates: end: 20070101
  3. LOPRESSOR [Concomitant]
     Indication: DRESSLER'S SYNDROME
     Dates: start: 20060101
  4. PLAVIX [Concomitant]
  5. PRILOSEC [Concomitant]
  6. ACETYLSALICYLIC ACID [Concomitant]
  7. ALLEGRA D 24 HOUR [Concomitant]
  8. LIPITOR [Concomitant]
  9. CARDIAC THERAPY [Concomitant]

REACTIONS (7)
  - CONVULSION [None]
  - DIZZINESS [None]
  - DREAMY STATE [None]
  - HYPOTENSION [None]
  - ILL-DEFINED DISORDER [None]
  - OEDEMA [None]
  - PAIN IN EXTREMITY [None]
